FAERS Safety Report 17185343 (Version 1)
Quarter: 2019Q4

REPORT INFORMATION
  Report Type: Spontaneous
  Country: US (occurrence: US)
  Receive Date: 20191220
  Receipt Date: 20191220
  Transmission Date: 20200122
  Serious: No
  Sender: FDA-Public Use
  Company Number: US-THERAPEUTICSMD-2019TMD03147

PATIENT
  Age: 64 Year
  Sex: Female

DRUGS (3)
  1. IMVEXXY [Suspect]
     Active Substance: ESTRADIOL
     Indication: GENITOURINARY SYMPTOM
     Dosage: 10 ?G, 1X/DAY
     Route: 067
     Dates: start: 20180828, end: 20180910
  2. ESTROGEN CREAM [Concomitant]
     Route: 061
  3. IMVEXXY [Suspect]
     Active Substance: ESTRADIOL
     Indication: MENOPAUSE
     Dosage: 10 ?G, 2X/WEEK
     Route: 067
     Dates: start: 20180911

REACTIONS (2)
  - Off label use [Not Recovered/Not Resolved]
  - Scan abnormal [Not Recovered/Not Resolved]

NARRATIVE: CASE EVENT DATE: 20180828
